FAERS Safety Report 5342208-7 (Version None)
Quarter: 2007Q2

REPORT INFORMATION
  Report Type: 
  Country: None (occurrence: None)
  Receive Date: 20070601
  Receipt Date: 20070525
  Transmission Date: 20071010
  Serious: Yes (Life-Threatening)
  Sender: FDA-Public Use
  Company Number: CN-ROCHE-499401

PATIENT
  Age: 56 Year
  Sex: Male

DRUGS (3)
  1. CAPECITABINE [Suspect]
     Dosage: ADMINISTERED ON DAYS 1 TO 15 OF EACH CYCLE.
     Route: 048
     Dates: start: 20070116, end: 20070330
  2. OXALIPLATIN [Suspect]
     Route: 042
     Dates: start: 20070116, end: 20070330
  3. RAMOSETRON [Concomitant]
     Route: 042
     Dates: start: 20070324, end: 20070324

REACTIONS (2)
  - DISSEMINATED INTRAVASCULAR COAGULATION [None]
  - GASTROINTESTINAL HAEMORRHAGE [None]
